FAERS Safety Report 4645915-4 (Version None)
Quarter: 2005Q2

REPORT INFORMATION
  Report Type: 
  Country: None (occurrence: None)
  Receive Date: 20050422
  Receipt Date: 20050422
  Transmission Date: 20051028
  Serious: No
  Sender: FDA-Public Use
  Company Number: None

PATIENT
  Age: 43 Year
  Sex: Male

DRUGS (4)
  1. DEXTRAN [Suspect]
     Indication: ATRIAL FIBRILLATION
     Dates: start: 20050124
  2. DEXTRAN [Suspect]
     Indication: ATRIAL FIBRILLATION
     Dates: start: 20050127
  3. DEXTRAN [Suspect]
     Indication: ATRIAL FIBRILLATION
     Dates: start: 20050201
  4. DEXTRAN [Suspect]
     Indication: ATRIAL FIBRILLATION
     Dates: start: 20050202

REACTIONS (2)
  - CEREBRAL ARTERY OCCLUSION [None]
  - CEREBROVASCULAR ACCIDENT [None]
